FAERS Safety Report 11232254 (Version 2)
Quarter: 2015Q3

REPORT INFORMATION
  Report Type: Spontaneous
  Country: ES (occurrence: None)
  Receive Date: 20150623
  Receipt Date: 20150702
  Transmission Date: 20151125
  Serious: Yes (Other)
  Sender: FDA-Public Use
  Company Number: 2015AA000609

PATIENT
  Age: 49 Year
  Sex: Male

DRUGS (1)
  1. PHARMALGEN WASP VENOM [Suspect]
     Active Substance: VESPULA VULGARIS VENOM PROTEIN
     Dates: start: 201411

REACTIONS (6)
  - Chest discomfort [None]
  - Oedema [None]
  - Erythema of eyelid [None]
  - Conjunctival hyperaemia [None]
  - Flushing [None]
  - Anxiety [None]

NARRATIVE: CASE EVENT DATE: 20150226
